FAERS Safety Report 7561823-3 (Version None)
Quarter: 2011Q2

REPORT INFORMATION
  Report Type: 
  Country: None (occurrence: None)
  Receive Date: 20110621
  Receipt Date: 20110616
  Transmission Date: 20111010
  Serious: Yes (Hospitalization)
  Sender: FDA-Public Use
  Company Number: MK-AMGEN-KDC407960

PATIENT
  Age: 51 Year
  Sex: Male

DRUGS (3)
  1. RANITIDINE [Concomitant]
     Dosage: 150 MG, PRN
  2. CALCIUM CARBONATE [Concomitant]
     Dosage: 2 G, QD
  3. CINACALCET HYDROCHLORIDE [Suspect]
     Indication: HYPERPARATHYROIDISM SECONDARY
     Dosage: 30 MG, QD
     Route: 048
     Dates: start: 20100412

REACTIONS (1)
  - VIRAL INFECTION [None]
